FAERS Safety Report 17207830 (Version 2)
Quarter: 2020Q1

REPORT INFORMATION
  Report Type: Spontaneous
  Country: CH (occurrence: CH)
  Receive Date: 20191227
  Receipt Date: 20200102
  Transmission Date: 20200409
  Serious: Yes (Life-Threatening, Hospitalization, Other)
  Sender: FDA-Public Use
  Company Number: CH-PFIZER INC-2019554176

PATIENT
  Age: 77 Year
  Sex: Female

DRUGS (18)
  1. LYRICA [Concomitant]
     Active Substance: PREGABALIN
     Dosage: 100 MG, 2X/DAY
     Route: 048
  2. ALDARA [Concomitant]
     Active Substance: IMIQUIMOD
     Dosage: 1 DF (5 PER WEEK)
     Route: 061
     Dates: start: 20181102, end: 20191124
  3. METHOTREXATE SODIUM. [Suspect]
     Active Substance: METHOTREXATE SODIUM
     Dosage: 2.5 MG, WEEKLY
     Route: 048
     Dates: end: 20190927
  4. CO-AMOXI [Suspect]
     Active Substance: AMOXICILLIN\CLAVULANATE POTASSIUM
     Dosage: 625 MG, 3X/DAY
     Route: 048
     Dates: start: 20190916, end: 20190917
  5. ACIDUM FOLICUM STREULI [Concomitant]
     Active Substance: FOLIC ACID
     Dosage: 5 MG, UNK (EACH WEDNESDAY AND FRIDAY)
     Route: 048
     Dates: end: 20190927
  6. ESOMEPRAZOL HELVEPHARM [Concomitant]
     Dosage: 20 MG, 2X/DAY
     Route: 048
  7. CO-AMOXI [Suspect]
     Active Substance: AMOXICILLIN\CLAVULANATE POTASSIUM
     Indication: TENOSYNOVITIS
     Dosage: 625 MG, 3X/DAY
     Route: 048
     Dates: start: 20190904, end: 20190907
  8. EUTHYROX [Concomitant]
     Active Substance: LEVOTHYROXINE SODIUM
     Dosage: 0.075 MG, 1X/DAY
     Route: 048
  9. METO ZEROK [Concomitant]
     Active Substance: METOPROLOL SUCCINATE
     Dosage: 12.5 MG, 1X/DAY
     Route: 048
  10. FUROSPIR [Concomitant]
     Active Substance: FUROSEMIDE\SPIRONOLACTONE
     Dosage: 0.5 DF, 1X/DAY (50 MG/20 MG)
     Route: 048
  11. LACRYCON [HYALURONATE SODIUM;POLYACRYLATE SODIUM] [Concomitant]
     Dosage: 1 DF, AS NEEDED
     Route: 047
     Dates: end: 20190927
  12. SIRDALUD [Concomitant]
     Active Substance: TIZANIDINE
     Dosage: 4 MG, AS NEEDED
     Route: 048
     Dates: end: 20190924
  13. DALACIN C [Suspect]
     Active Substance: CLINDAMYCIN PHOSPHATE
     Indication: TENOSYNOVITIS
     Dosage: 300 MG, 3X/DAY
     Route: 048
     Dates: start: 20190917, end: 20190922
  14. MAGNEGON [Concomitant]
     Dosage: 120 MG, AS NEEDED
     Route: 048
     Dates: end: 20190924
  15. ZOLDORM [Concomitant]
     Active Substance: ZOLPIDEM TARTRATE
     Dosage: 10 MG, AS NEEDED
     Route: 048
     Dates: end: 20190927
  16. MARCOUMAR [Concomitant]
     Active Substance: PHENPROCOUMON
     Dosage: 1 DF, 1X/DAY, ACCORDING TO INR
     Route: 048
     Dates: end: 20190927
  17. TEMGESIC [Concomitant]
     Active Substance: BUPRENORPHINE HYDROCHLORIDE
     Indication: PAIN
     Dosage: 0.2 MG, AS NEEDED
     Route: 060
     Dates: end: 20190927
  18. BEPANTHEN [DEXPANTHENOL] [Concomitant]
     Active Substance: DEXPANTHENOL
     Dosage: 1 DF, AS NEEDED
     Route: 061
     Dates: end: 20190927

REACTIONS (4)
  - Urosepsis [Unknown]
  - Pancytopenia [Recovering/Resolving]
  - Acute generalised exanthematous pustulosis [Recovering/Resolving]
  - Oral candidiasis [Unknown]

NARRATIVE: CASE EVENT DATE: 20190923
